FAERS Safety Report 7475842-9 (Version None)
Quarter: 2011Q2

REPORT INFORMATION
  Report Type: 
  Country: None (occurrence: None)
  Receive Date: 20110510
  Receipt Date: 20110510
  Transmission Date: 20111010
  Serious: Yes (Other)
  Sender: FDA-Public Use
  Company Number: None

PATIENT
  Age: 76 Year
  Sex: Male
  Weight: 88.4514 kg

DRUGS (2)
  1. PRADAXA [Suspect]
     Indication: ATRIAL FIBRILLATION
     Dosage: 159 MG 2X DAY PO
     Route: 048
     Dates: start: 20110101, end: 20110501
  2. PRADAXA [Suspect]
     Indication: CEREBROVASCULAR ACCIDENT PROPHYLAXIS
     Dosage: 159 MG 2X DAY PO
     Route: 048
     Dates: start: 20110101, end: 20110501

REACTIONS (3)
  - RASH [None]
  - DRUG HYPERSENSITIVITY [None]
  - URTICARIA [None]
